FAERS Safety Report 19140717 (Version 1)
Quarter: 2021Q2

REPORT INFORMATION
  Report Type: Spontaneous
  Country: DE (occurrence: DE)
  Receive Date: 20210415
  Receipt Date: 20210415
  Transmission Date: 20210717
  Serious: Yes (Death, Hospitalization)
  Sender: FDA-Public Use
  Company Number: DE-TEVA-2021-DE-1900408

PATIENT
  Age: 83 Year
  Sex: Male

DRUGS (7)
  1. PROSTAGUTT FORTE 160/120MG [Concomitant]
     Dosage: 1 DOSAGE FORMS DAILY; 120|160 MG, 1?0?0?0
  2. TAMSULOSIN [Concomitant]
     Active Substance: TAMSULOSIN
     Dosage: .4 MILLIGRAM DAILY; 1?0?0?0
  3. TOLTERODIN [Concomitant]
     Active Substance: TOLTERODINE TARTRATE
     Dosage: 4 MILLIGRAM DAILY; 1?0?0?0
  4. CLOPIDOGREL [Suspect]
     Active Substance: CLOPIDOGREL BISULFATE
     Dosage: 75 MILLIGRAM DAILY;  1?0?0?0
     Route: 065
  5. ATORVASTATIN [Concomitant]
     Active Substance: ATORVASTATIN
     Dosage: 10 MILLIGRAM DAILY;  0?0?1?0
  6. TELMISARTAN. [Concomitant]
     Active Substance: TELMISARTAN
     Dosage: 80 MG, 0.5?0?0?0
  7. ASS 100 [Suspect]
     Active Substance: ASPIRIN
     Dosage: 100 MILLIGRAM DAILY; 0?1?0?0
     Route: 065

REACTIONS (6)
  - Asthenia [Unknown]
  - Dizziness [Unknown]
  - Haematochezia [Unknown]
  - Anaemia [Unknown]
  - Dyspnoea exertional [Unknown]
  - Faecaloma [Unknown]
